FAERS Safety Report 16522639 (Version 7)
Quarter: 2019Q4

REPORT INFORMATION
  Report Type: Report from Study
  Country: US (occurrence: US)
  Receive Date: 20190702
  Receipt Date: 20191001
  Transmission Date: 20200122
  Serious: Yes (Hospitalization, Other)
  Sender: FDA-Public Use
  Company Number: US-GLAXOSMITHKLINE-US2019115886

PATIENT
  Age: 29 Year
  Sex: Female
  Weight: 56.69 kg

DRUGS (1)
  1. BELIMUMAB [Suspect]
     Active Substance: BELIMUMAB
     Indication: SYSTEMIC LUPUS ERYTHEMATOSUS
     Dosage: UNK
     Route: 042
     Dates: end: 201708

REACTIONS (11)
  - Retained placenta or membranes [Unknown]
  - Live birth [Unknown]
  - Premature delivery [Unknown]
  - Vaginal haemorrhage [Unknown]
  - Exposure during pregnancy [Unknown]
  - Uterine dilation and curettage [Unknown]
  - Anaemia [Unknown]
  - Postpartum haemorrhage [Recovered/Resolved]
  - Preterm premature rupture of membranes [Recovered/Resolved]
  - Infertility female [Unknown]
  - Maternal exposure during breast feeding [Unknown]

NARRATIVE: CASE EVENT DATE: 20180327
